FAERS Safety Report 12099543 (Version 2)
Quarter: 2020Q1

REPORT INFORMATION
  Report Type: Report from Study
  Country: US (occurrence: US)
  Receive Date: 20160222
  Receipt Date: 20200107
  Transmission Date: 20200409
  Serious: Yes (Hospitalization)
  Sender: FDA-Public Use
  Company Number: US-CIPLA LTD.-2016US01302

PATIENT

DRUGS (2)
  1. GEMCITABINE. [Suspect]
     Active Substance: GEMCITABINE
     Indication: HODGKIN^S DISEASE
     Dosage: 1000 MILLIGRAM/SQ. METER
     Route: 065
  2. BENDAMUSTINE [Suspect]
     Active Substance: BENDAMUSTINE
     Indication: HODGKIN^S DISEASE
     Dosage: 60MG/M2 TO 120 MG/M2 ON DAYS 1 AND 2 OF EACH CYCLE FOR UP TO 6 CYCLES
     Route: 065

REACTIONS (1)
  - Pneumonitis [Recovered/Resolved]
